FAERS Safety Report 5599871-5 (Version None)
Quarter: 2008Q1

REPORT INFORMATION
  Report Type: 
  Country: None (occurrence: None)
  Receive Date: 20080117
  Receipt Date: 20080103
  Transmission Date: 20080703
  Serious: Yes (Hospitalization)
  Sender: FDA-Public Use
  Company Number: TIF2007A00240

PATIENT
  Age: 65 Year
  Sex: Female

DRUGS (2)
  1. COMPETACT (PIOGLITAZONE HYDROCHLORIDE,METFORMIN HYDROCHLORIDE) [Suspect]
     Indication: DIABETES MELLITUS
     Dosage: 30 MG/ 1700 MG (2 IN 1 D) ORAL
     Route: 048
     Dates: start: 20071112, end: 20071114
  2. ACETYLSALICYLIC ACID SRT [Concomitant]

REACTIONS (4)
  - DRUG EFFECT DECREASED [None]
  - HYPERTENSIVE CRISIS [None]
  - PALPITATIONS [None]
  - TACHYCARDIA [None]
